FAERS Safety Report 10622775 (Version 2)
Quarter: 2014Q4

REPORT INFORMATION
  Report Type: Spontaneous
  Country: FR (occurrence: FR)
  Receive Date: 20141203
  Receipt Date: 20141203
  Transmission Date: 20150529
  Serious: Yes (Hospitalization)
  Sender: FDA-Public Use
  Company Number: FR-PFIZER INC-2014299003

PATIENT
  Age: 33 Year
  Sex: Female

DRUGS (7)
  1. TRINORDIOL [Suspect]
     Active Substance: ETHINYL ESTRADIOL\LEVONORGESTREL
     Indication: CONTRACEPTION
     Dosage: 1 DF, DAILY
     Route: 048
     Dates: end: 201410
  2. METHOTREXATE (METHOTREXATE SODIUM) [Suspect]
     Active Substance: METHOTREXATE SODIUM
     Indication: PSORIATIC ARTHROPATHY
     Dosage: STRENGTH 10 MG (20 MG, 1 IN 1 W)
     Route: 048
     Dates: start: 20140908
  3. INIPOMP [Suspect]
     Active Substance: PANTOPRAZOLE SODIUM
     Dosage: LONG-TERM TREATMENT
     Route: 048
  4. HUMIRA [Suspect]
     Active Substance: ADALIMUMAB
     Indication: PSORIATIC ARTHROPATHY
     Dosage: 40 MG /15 DAYS
     Route: 058
     Dates: start: 2010
  5. DAFALGAN [Suspect]
     Active Substance: ACETAMINOPHEN
     Dosage: LONG-TERM TREATMENT
     Route: 048
  6. METHOTREXATE SODIUM. [Suspect]
     Active Substance: METHOTREXATE SODIUM
     Dosage: 20 MG, WEEKLY
     Route: 048
     Dates: start: 2008, end: 20140907
  7. CARTREX [Suspect]
     Active Substance: ACECLOFENAC
     Indication: PSORIATIC ARTHROPATHY
     Dosage: 1DF TWICE DAILY (STRENGTH 100 MG)
     Route: 048
     Dates: end: 20140913

REACTIONS (1)
  - Cerebral venous thrombosis [Not Recovered/Not Resolved]

NARRATIVE: CASE EVENT DATE: 20141001
